FAERS Safety Report 12697654 (Version 1)
Quarter: 2016Q3

REPORT INFORMATION
  Report Type: Spontaneous
  Country: US (occurrence: US)
  Receive Date: 20160830
  Receipt Date: 20160830
  Transmission Date: 20161109
  Serious: No
  Sender: FDA-Public Use
  Company Number: US-BEH-2016073079

PATIENT
  Sex: Female
  Weight: 81.63 kg

DRUGS (19)
  1. LIDOCAINE/PRILOCAINE [Concomitant]
     Active Substance: LIDOCAINE\PRILOCAINE
  2. SODIUM CHLORIDE. [Concomitant]
     Active Substance: SODIUM CHLORIDE
  3. EPIPEN [Concomitant]
     Active Substance: EPINEPHRINE
  4. RIZATRIPTAN. [Concomitant]
     Active Substance: RIZATRIPTAN
  5. TOPAMAX [Concomitant]
     Active Substance: TOPIRAMATE
  6. TUSSIN                             /00048001/ [Concomitant]
  7. ZOFRAN [Concomitant]
     Active Substance: ONDANSETRON HYDROCHLORIDE
  8. VERAPAMIL [Concomitant]
     Active Substance: VERAPAMIL HYDROCHLORIDE
  9. BUTALBITAL AND ACETAMINOPHEN [Concomitant]
     Active Substance: ACETAMINOPHEN\BUTALBITAL
  10. ZEMAIRA [Suspect]
     Active Substance: .ALPHA.1-PROTEINASE INHIBITOR HUMAN
     Indication: ALPHA-1 ANTI-TRYPSIN DEFICIENCY
     Dosage: 60 MG/KG, QW
     Route: 042
     Dates: start: 20160128
  11. IBUPROFEN. [Concomitant]
     Active Substance: IBUPROFEN
  12. METOPROLOL. [Concomitant]
     Active Substance: METOPROLOL
  13. DIPHENHYDRAMINE. [Concomitant]
     Active Substance: DIPHENHYDRAMINE
  14. BREO ELLIPTA [Concomitant]
     Active Substance: FLUTICASONE FUROATE\VILANTEROL TRIFENATATE
  15. SOLU-MEDROL [Concomitant]
     Active Substance: METHYLPREDNISOLONE SODIUM SUCCINATE
  16. ANORO ELLIPTA [Concomitant]
     Active Substance: UMECLIDINIUM BROMIDE\VILANTEROL TRIFENATATE
  17. NORMAL SALINE [Concomitant]
     Active Substance: SODIUM CHLORIDE
  18. HEPARIN [Concomitant]
     Active Substance: HEPARIN SODIUM
  19. LMX                                /00033401/ [Concomitant]

REACTIONS (6)
  - Fluid retention [Unknown]
  - Flushing [Unknown]
  - Fatigue [Unknown]
  - Hypertension [Unknown]
  - Pain [Unknown]
  - Nausea [Unknown]
